FAERS Safety Report 8337089-3 (Version None)
Quarter: 2012Q2

REPORT INFORMATION
  Report Type: 
  Country: None (occurrence: None)
  Receive Date: 20120504
  Receipt Date: 20120426
  Transmission Date: 20120825
  Serious: Yes (Other)
  Sender: FDA-Public Use
  Company Number: NZ-MUTUAL PHARMACEUTICAL COMPANY, INC.-FDER20120002

PATIENT
  Sex: Male
  Weight: 66.738 kg

DRUGS (8)
  1. CLOPIDOGREL HYDROGEN SULFATE 75 MG [Concomitant]
     Indication: ANTICOAGULANT THERAPY
     Route: 048
     Dates: start: 20100915
  2. FELODIPINE [Suspect]
     Indication: HYPERTENSION
     Route: 065
     Dates: start: 20100915, end: 20101108
  3. METOPROLOL TARTRATE [Suspect]
     Indication: PRODUCT USED FOR UNKNOWN INDICATION
     Route: 065
  4. DOXAZOSIN MESYLATE 1 MG [Concomitant]
     Indication: HYPERTENSION
     Route: 048
     Dates: start: 20100915
  5. OMEPRAZOLE [Concomitant]
     Indication: ANGINA PECTORIS
     Route: 048
     Dates: start: 20020901
  6. ASPIRIN EC 100 MG [Concomitant]
     Indication: ANGINA PECTORIS
     Route: 048
     Dates: start: 20020901
  7. DURIDE CR 60 MG [Concomitant]
     Indication: ANGINA PECTORIS
     Route: 048
     Dates: start: 20020901
  8. METOPROLOL SUCCINATE [Suspect]
     Indication: ANGINA PECTORIS
     Route: 048
     Dates: start: 20020901

REACTIONS (6)
  - CHRONIC LYMPHOCYTIC LEUKAEMIA [None]
  - GAIT DISTURBANCE [None]
  - LYMPHADENOPATHY [None]
  - JOINT SWELLING [None]
  - LETHARGY [None]
  - ASTHENIA [None]
